FAERS Safety Report 7492273-6 (Version None)
Quarter: 2011Q2

REPORT INFORMATION
  Report Type: 
  Country: None (occurrence: None)
  Receive Date: 20110519
  Receipt Date: 20110511
  Transmission Date: 20111010
  Serious: Yes (Death)
  Sender: FDA-Public Use
  Company Number: US-ELI_LILLY_AND_COMPANY-US201105004762

PATIENT
  Age: 73 Year
  Sex: Male

DRUGS (1)
  1. EFFIENT [Suspect]
     Dosage: 10 MG, UNK
     Dates: start: 20110401

REACTIONS (1)
  - DEATH [None]
